FAERS Safety Report 10149520 (Version 1)
Quarter: 2014Q2

REPORT INFORMATION
  Report Type: Spontaneous
  Country: NO (occurrence: NO)
  Receive Date: 20140502
  Receipt Date: 20140502
  Transmission Date: 20141212
  Serious: Yes (Other)
  Sender: FDA-Public Use
  Company Number: NO-PFIZER INC-2014119831

PATIENT
  Sex: Female

DRUGS (3)
  1. NEURONTIN [Suspect]
     Indication: HERPES ZOSTER
     Dosage: 400 MG, 1X/DAY
  2. NEURONTIN [Suspect]
     Dosage: 400 MG, 2X/DAY
  3. NEURONTIN [Suspect]
     Dosage: 400 MG, 3X/DAY
     Dates: start: 20140426

REACTIONS (1)
  - Asthma [Unknown]
